FAERS Safety Report 18143332 (Version 3)
Quarter: 2020Q3

REPORT INFORMATION
  Report Type: Spontaneous
  Country: US (occurrence: US)
  Receive Date: 20200812
  Receipt Date: 20200925
  Transmission Date: 20201103
  Serious: Yes (Death, Other)
  Sender: FDA-Public Use
  Company Number: US-GILEAD-2020-0489778

PATIENT
  Age: 66 Year
  Sex: Male
  Weight: 73.4 kg

DRUGS (8)
  1. VASOPRESSIN. [Concomitant]
     Active Substance: VASOPRESSIN
     Dosage: 0.03 U/MIN
     Route: 042
     Dates: start: 20200729, end: 20200807
  2. OXYGEN. [Concomitant]
     Active Substance: OXYGEN
  3. FENTANYL. [Concomitant]
     Active Substance: FENTANYL
     Indication: SEDATION
     Dosage: 100 MCG/HR
     Route: 042
     Dates: start: 20200726, end: 20200807
  4. FENTANYL. [Concomitant]
     Active Substance: FENTANYL
     Indication: PAIN
  5. ENOXAPARIN [Concomitant]
     Active Substance: ENOXAPARIN
     Indication: THROMBOSIS PROPHYLAXIS
     Dosage: 65 MG
     Route: 058
     Dates: start: 20200730, end: 20200807
  6. REMDESIVIR. [Suspect]
     Active Substance: REMDESIVIR
     Indication: COVID-19
     Dosage: 100 MG
     Route: 042
     Dates: start: 20200716, end: 20200720
  7. MEROPENEM. [Concomitant]
     Active Substance: MEROPENEM
     Indication: EVIDENCE BASED TREATMENT
     Dosage: 1 G
     Route: 042
     Dates: start: 20200731, end: 20200807
  8. NOREPINEPHRINE. [Concomitant]
     Active Substance: NOREPINEPHRINE
     Dosage: 50 MCG/MIN
     Route: 042
     Dates: start: 20200726, end: 20200807

REACTIONS (6)
  - Pneumonia [Fatal]
  - Acute respiratory distress syndrome [Fatal]
  - Acute respiratory failure [Fatal]
  - Multi-organ disorder [Fatal]
  - COVID-19 [Fatal]
  - Septic shock [Fatal]
